FAERS Safety Report 5660284-9 (Version None)
Quarter: 2008Q1

REPORT INFORMATION
  Report Type: 
  Country: None (occurrence: None)
  Receive Date: 20080214
  Receipt Date: 20071121
  Transmission Date: 20080703
  Serious: No
  Sender: FDA-Public Use
  Company Number: WAES 0711USA04439

PATIENT
  Age: 52 Year
  Sex: Male

DRUGS (9)
  1. ISENTRESS [Suspect]
     Indication: HIV INFECTION
     Dosage: 400 MG/BID/PO
     Route: 048
     Dates: start: 20071022
  2. COREG [Concomitant]
  3. ELAVIL [Concomitant]
  4. EPZICOM [Concomitant]
  5. NEURONTIN [Concomitant]
  6. NORVIR [Concomitant]
  7. PREZISTA [Concomitant]
  8. [THERAPY UNSPECIFIED] [Concomitant]
  9. OXYCODONE HCL [Concomitant]

REACTIONS (3)
  - CHILLS [None]
  - INSOMNIA [None]
  - NIGHT SWEATS [None]
